FAERS Safety Report 7085328-1 (Version None)
Quarter: 2010Q4

REPORT INFORMATION
  Report Type: 
  Country: None (occurrence: None)
  Receive Date: 20101105
  Receipt Date: 20101025
  Transmission Date: 20110411
  Serious: Yes (Other)
  Sender: FDA-Public Use
  Company Number: AU-PFIZER INC-2010136246

PATIENT
  Age: 75 Year
  Sex: Male

DRUGS (2)
  1. LYRICA [Suspect]
     Indication: BACK PAIN
     Dosage: 75 MG, 2X/DAY
  2. LYRICA [Suspect]
     Indication: SCIATICA

REACTIONS (1)
  - BLOOD GLUCOSE INCREASED [None]
